FAERS Safety Report 6394321-3 (Version None)
Quarter: 2009Q4

REPORT INFORMATION
  Report Type: 
  Country: None (occurrence: None)
  Receive Date: 20091006
  Receipt Date: 20091002
  Transmission Date: 20100525
  Serious: Yes (Hospitalization)
  Sender: FDA-Public Use
  Company Number: SP02491

PATIENT
  Age: 64 Year
  Sex: Male

DRUGS (4)
  1. VISICOL [Suspect]
     Indication: BOWEL PREPARATION
     Dosage: (50 GM) ,ORAL
     Route: 048
     Dates: start: 20090714, end: 20090714
  2. OLMESARTAN MEDOXOMIL [Concomitant]
  3. DOXAZOSIN MESILATE [Concomitant]
  4. AMLODIPINE BESYLATE [Concomitant]

REACTIONS (5)
  - DECREASED APPETITE [None]
  - HAEMORRHOIDS [None]
  - LIP DRY [None]
  - RENAL FAILURE ACUTE [None]
  - VOLUME BLOOD DECREASED [None]
